FAERS Safety Report 16182767 (Version 1)
Quarter: 2019Q2

REPORT INFORMATION
  Report Type: Spontaneous
  Country: FR (occurrence: FR)
  Receive Date: 20190411
  Receipt Date: 20190411
  Transmission Date: 20190711
  Serious: Yes (Other)
  Sender: FDA-Public Use
  Company Number: FR-TEVA-2019-FR-1033975

PATIENT
  Age: 62 Year
  Sex: Female

DRUGS (1)
  1. LOPERAMIDE (CHLORHYDRATE DE) [Suspect]
     Active Substance: LOPERAMIDE
     Indication: DIARRHOEA
     Route: 048
     Dates: start: 20190221, end: 20190221

REACTIONS (4)
  - Loss of consciousness [Recovered/Resolved]
  - Dyskinesia [Recovered/Resolved]
  - Nausea [Recovered/Resolved]
  - Pallor [Recovered/Resolved]

NARRATIVE: CASE EVENT DATE: 20190221
